FAERS Safety Report 4588583-2 (Version None)
Quarter: 2005Q1

REPORT INFORMATION
  Report Type: 
  Country: None (occurrence: None)
  Receive Date: 20050216
  Receipt Date: 20050216
  Transmission Date: 20050727
  Serious: Yes (Death)
  Sender: FDA-Public Use
  Company Number: None

PATIENT
  Age: 52 Year
  Sex: Male
  Weight: 90.7194 kg

DRUGS (8)
  1. BEXTRA [Suspect]
     Dosage: 10 MG ONCE DAILY ORAL
     Route: 048
     Dates: start: 20031020, end: 20031118
  2. DIOVAN [Concomitant]
  3. ALTACE [Concomitant]
  4. PLAVIX [Concomitant]
  5. LIPITOR [Concomitant]
  6. ACTOS [Concomitant]
  7. PLETAL [Concomitant]
  8. AMARYL [Concomitant]

REACTIONS (2)
  - ACUTE MYOCARDIAL INFARCTION [None]
  - ARRHYTHMIA [None]
